FAERS Safety Report 19271418 (Version 3)
Quarter: 2021Q2

REPORT INFORMATION
  Report Type: Spontaneous
  Country: CN (occurrence: CN)
  Receive Date: 20210518
  Receipt Date: 20210526
  Transmission Date: 20210717
  Serious: Yes (Hospitalization)
  Sender: FDA-Public Use
  Company Number: CN-GLAXOSMITHKLINE-CNCH2021028649

PATIENT
  Sex: Female

DRUGS (1)
  1. VOLTAREN EMULGEL [Suspect]
     Active Substance: DICLOFENAC DIETHYLAMINE
     Indication: FRACTURE PAIN
     Dosage: UNK

REACTIONS (9)
  - Chest discomfort [Unknown]
  - Urticaria [Not Recovered/Not Resolved]
  - Pharyngeal swelling [Recovering/Resolving]
  - Off label use [Unknown]
  - Lip swelling [Unknown]
  - Swollen tongue [Unknown]
  - Dyspnoea [Unknown]
  - Pruritus [Unknown]
  - Pain in extremity [Unknown]
